FAERS Safety Report 6501623-6 (Version None)
Quarter: 2009Q4

REPORT INFORMATION
  Report Type: 
  Country: None (occurrence: None)
  Receive Date: 20091216
  Receipt Date: 20091211
  Transmission Date: 20100525
  Serious: Yes (Other)
  Sender: FDA-Public Use
  Company Number: GB-WYE-G05125609

PATIENT

DRUGS (1)
  1. RAPAMUNE [Suspect]
     Indication: TRANSPLANT REJECTION
     Dosage: UNKNOWN

REACTIONS (1)
  - COLITIS [None]
